FAERS Safety Report 19974118 (Version 1)
Quarter: 2021Q4

REPORT INFORMATION
  Report Type: Spontaneous
  Country: US (occurrence: US)
  Receive Date: 20211020
  Receipt Date: 20211020
  Transmission Date: 20220303
  Serious: Yes (Other)
  Sender: FDA-Public Use
  Company Number: None

PATIENT
  Age: 69 Year
  Sex: Male

DRUGS (1)
  1. TRIAMCINOLONE [Suspect]
     Active Substance: TRIAMCINOLONE
     Indication: Oral disorder
     Route: 065
     Dates: start: 20210803

REACTIONS (2)
  - Oral pain [None]
  - Product adhesion issue [None]

NARRATIVE: CASE EVENT DATE: 20211019
